FAERS Safety Report 18691739 (Version 2)
Quarter: 2021Q1

REPORT INFORMATION
  Report Type: Spontaneous
  Country: BE (occurrence: BE)
  Receive Date: 20210102
  Receipt Date: 20210209
  Transmission Date: 20210419
  Serious: Yes (Life-Threatening, Hospitalization, Other)
  Sender: FDA-Public Use
  Company Number: BE-SUN PHARMACEUTICAL INDUSTRIES LTD-2020R1-273700

PATIENT
  Age: 32 Year
  Sex: Male

DRUGS (1)
  1. VENLAFAXINE [Suspect]
     Active Substance: VENLAFAXINE HYDROCHLORIDE
     Indication: DEPRESSION
     Dosage: 12 GRAM
     Route: 065

REACTIONS (15)
  - Intentional overdose [Unknown]
  - Toxicity to various agents [Unknown]
  - Sinus tachycardia [Unknown]
  - Hypotension [Unknown]
  - Acute kidney injury [Unknown]
  - Suicide attempt [Unknown]
  - Shock [Unknown]
  - Transplant failure [Unknown]
  - Cardiac failure acute [Recovered/Resolved]
  - Nervous system disorder [Unknown]
  - Cardiogenic shock [Recovered/Resolved]
  - Altered state of consciousness [Unknown]
  - Electrocardiogram repolarisation abnormality [Unknown]
  - Electrocardiogram QT prolonged [Unknown]
  - Bundle branch block right [Unknown]
